FAERS Safety Report 13030733 (Version 1)
Quarter: 2016Q4

REPORT INFORMATION
  Report Type: Spontaneous
  Country: GR (occurrence: GR)
  Receive Date: 20161215
  Receipt Date: 20161215
  Transmission Date: 20170207
  Serious: Yes (Death)
  Sender: FDA-Public Use
  Company Number: GR-ACTELION-A-CH2016-146588

PATIENT
  Age: 86 Year
  Sex: Female
  Weight: 60 kg

DRUGS (2)
  1. TRACLEER [Suspect]
     Active Substance: BOSENTAN
     Indication: SCLERODERMA ASSOCIATED DIGITAL ULCER
     Dosage: 125 MG, BID
     Route: 048
     Dates: end: 20161121
  2. MEDROL [Concomitant]
     Active Substance: METHYLPREDNISOLONE
     Indication: SYSTEMIC SCLERODERMA
     Dosage: 4 MG, OD
     Route: 048
     Dates: start: 2016, end: 20161126

REACTIONS (5)
  - Respiratory tract infection [Fatal]
  - Aspiration [Unknown]
  - Acute respiratory distress syndrome [Fatal]
  - Hypoxia [Fatal]
  - Cardiac arrest [Fatal]

NARRATIVE: CASE EVENT DATE: 20161110
